FAERS Safety Report 18548777 (Version 2)
Quarter: 2021Q1

REPORT INFORMATION
  Report Type: Report from Study
  Country: None (occurrence: US)
  Receive Date: 20201125
  Receipt Date: 20210127
  Transmission Date: 20210419
  Serious: Yes (Other)
  Sender: FDA-Public Use
  Company Number: US-ABBVIE-20K-163-3596434-00

PATIENT
  Sex: Male
  Weight: 81.72 kg

DRUGS (1)
  1. HUMIRA [Suspect]
     Active Substance: ADALIMUMAB
     Indication: ANKYLOSING SPONDYLITIS
     Dosage: CITRATE FREE
     Route: 058

REACTIONS (6)
  - Pain in extremity [Unknown]
  - Carpal tunnel syndrome [Unknown]
  - Trigger finger [Not Recovered/Not Resolved]
  - Arthritis [Unknown]
  - Pain in extremity [Recovering/Resolving]
  - Ligamentitis [Unknown]
